FAERS Safety Report 11556026 (Version 1)
Quarter: 2015Q3

REPORT INFORMATION
  Report Type: Spontaneous
  Country: US (occurrence: US)
  Receive Date: 20150916
  Receipt Date: 20150916
  Transmission Date: 20151125
  Serious: No
  Sender: FDA-Public Use
  Company Number: US-ELI_LILLY_AND_COMPANY-US200707004429

PATIENT
  Sex: Female

DRUGS (2)
  1. FORTEO [Suspect]
     Active Substance: TERIPARATIDE
     Dosage: UNK, UNK
     Dates: start: 20070717
  2. XANAX [Concomitant]
     Active Substance: ALPRAZOLAM
     Dosage: 1 D/F, 4/D

REACTIONS (5)
  - Hearing impaired [Unknown]
  - Visual acuity reduced [Unknown]
  - Arthropathy [Unknown]
  - Ear pain [Not Recovered/Not Resolved]
  - Nervousness [Unknown]
